FAERS Safety Report 13778325 (Version 1)
Quarter: 2017Q3

REPORT INFORMATION
  Report Type: Spontaneous
  Country: US (occurrence: US)
  Receive Date: 20170721
  Receipt Date: 20170721
  Transmission Date: 20171127
  Serious: No
  Sender: FDA-Public Use
  Company Number: US-TEVA-706448USA

PATIENT
  Age: 33 Year

DRUGS (5)
  1. MIRENA [Concomitant]
     Active Substance: LEVONORGESTREL
  2. SYNTHROID [Concomitant]
     Active Substance: LEVOTHYROXINE SODIUM
  3. AMPHETAMINE W/DEXTROAMPHETAMINE [Suspect]
     Active Substance: AMPHETAMINE SULFATE\DEXTROAMPHETAMINE
     Indication: ATTENTION DEFICIT/HYPERACTIVITY DISORDER
     Route: 065
     Dates: start: 201607
  4. AMBIEN [Concomitant]
     Active Substance: ZOLPIDEM TARTRATE
  5. SOMA [Concomitant]
     Active Substance: CARISOPRODOL

REACTIONS (11)
  - Nervousness [Unknown]
  - Erythema [Recovered/Resolved]
  - Palpitations [Recovered/Resolved]
  - Anxiety [Unknown]
  - Headache [Recovered/Resolved]
  - Fear [Unknown]
  - Tremor [Recovered/Resolved]
  - Crying [Unknown]
  - Hyperhidrosis [Recovered/Resolved]
  - Tachyphrenia [Unknown]
  - Product substitution issue [Unknown]
